FAERS Safety Report 4464872-7 (Version None)
Quarter: 2004Q4

REPORT INFORMATION
  Report Type: 
  Country: None (occurrence: None)
  Receive Date: 20041004
  Receipt Date: 20031222
  Transmission Date: 20050328
  Serious: No
  Sender: FDA-Public Use
  Company Number: 356698

PATIENT
  Sex: Male

DRUGS (1)
  1. COREG [Suspect]
     Indication: ILL-DEFINED DISORDER
     Dosage: 12.5MG PER DAY
     Route: 048

REACTIONS (2)
  - BLOOD PRESSURE INCREASED [None]
  - PHARMACEUTICAL PRODUCT COMPLAINT [None]
